FAERS Safety Report 15573407 (Version 2)
Quarter: 2019Q1

REPORT INFORMATION
  Report Type: Other
  Country: US (occurrence: US)
  Receive Date: 20181101
  Receipt Date: 20190217
  Transmission Date: 20190417
  Serious: Yes (Other)
  Sender: FDA-Public Use
  Company Number: US-DEXPHARM-20180828

PATIENT
  Age: 56 Year
  Sex: Male

DRUGS (6)
  1. ALPRAZOLAM. [Suspect]
     Active Substance: ALPRAZOLAM
     Dosage: WHEN NECESSARY
  2. LANSOPRAZOLE. [Suspect]
     Active Substance: LANSOPRAZOLE
     Dosage: EVERY MORNING
  3. LAMOTRIGINE. [Suspect]
     Active Substance: LAMOTRIGINE
     Dosage: DAILY DOSE: 300 MG MILLGRAM(S) EVERY DAYS
  4. ENALAPRIL [Suspect]
     Active Substance: ENALAPRIL
     Dosage: EVERY MORNING
  5. MIRTAZAPINE. [Suspect]
     Active Substance: MIRTAZAPINE
     Dosage: EVERY NIGHT AT BEDTIME
  6. ESCITALOPRAM [Suspect]
     Active Substance: ESCITALOPRAM OXALATE
     Dosage: DAILY DOSE: 40 MG MILLGRAM(S) EVERY DAYS

REACTIONS (1)
  - Sexual dysfunction [Unknown]
